FAERS Safety Report 4619693-9 (Version None)
Quarter: 2005Q1

REPORT INFORMATION
  Report Type: 
  Country: None (occurrence: None)
  Receive Date: 20050324
  Receipt Date: 20050317
  Transmission Date: 20050727
  Serious: Yes (Hospitalization)
  Sender: FDA-Public Use
  Company Number: 2005046189

PATIENT
  Age: 41 Year
  Sex: Male

DRUGS (3)
  1. SORTIS       (ATORVASTATIN) [Suspect]
     Indication: MYOCARDIAL INFARCTION
     Dosage: ORAL
     Route: 048
     Dates: end: 20050315
  2. CLOPIDOGREL BISULFATE [Concomitant]
  3. CELIPROLOL HYDROCHLORIDE            (CELIPROLOL HYDROCHLORIDE) [Concomitant]

REACTIONS (6)
  - ARTHRALGIA [None]
  - CHILLS [None]
  - INFECTION [None]
  - PRURITUS [None]
  - PYREXIA [None]
  - RASH [None]
